FAERS Safety Report 6518107-1 (Version None)
Quarter: 2009Q4

REPORT INFORMATION
  Report Type: 
  Country: None (occurrence: None)
  Receive Date: 20091224
  Receipt Date: 20091216
  Transmission Date: 20100525
  Serious: Yes (Hospitalization, Other)
  Sender: FDA-Public Use
  Company Number: US-ELI_LILLY_AND_COMPANY-US200912004431

PATIENT
  Sex: Female

DRUGS (9)
  1. FORTEO [Suspect]
     Indication: OSTEOPOROSIS
     Dosage: 20 UG, DAILY (1/D)
     Dates: start: 20090101
  2. DIOVAN [Concomitant]
     Indication: BLOOD PRESSURE
  3. LABETALOL HCL [Concomitant]
     Indication: BLOOD PRESSURE
  4. SIMVASTATIN [Concomitant]
  5. CYMBALTA [Concomitant]
     Indication: NERVOUSNESS
  6. LEVOTHYROXINE SODIUM [Concomitant]
     Indication: THYROID DISORDER
  7. LORAZEPAM [Concomitant]
     Indication: NERVOUSNESS
  8. LYRICA [Concomitant]
     Indication: PAIN
  9. OXYCODONE [Concomitant]
     Indication: PAIN
     Dosage: 10 MG, AS NEEDED EVERY 4 - 6 HRS

REACTIONS (6)
  - ALTERED STATE OF CONSCIOUSNESS [None]
  - ASTHENIA [None]
  - FALL [None]
  - GAIT DISTURBANCE [None]
  - HYPERTENSION [None]
  - MEMORY IMPAIRMENT [None]
